FAERS Safety Report 7251158-0 (Version None)
Quarter: 2011Q1

REPORT INFORMATION
  Report Type: 
  Country: None (occurrence: None)
  Receive Date: 20110119
  Receipt Date: 20110104
  Transmission Date: 20110831
  Serious: Yes (Death, Disabling)
  Sender: FDA-Public Use
  Company Number: AUR-APL-2010-03006

PATIENT
  Age: 69 Year
  Sex: Female

DRUGS (9)
  1. ASPIRIN [Concomitant]
  2. CODEINE SULFATE [Concomitant]
  3. FENTANYL [Concomitant]
  4. LANSOPRAZOLE [Concomitant]
  5. RISEDRONATE [Concomitant]
  6. BISOPROLOL FUMARATE [Suspect]
     Indication: ATRIAL FIBRILLATION
     Dosage: 5MG-ORAL
     Route: 048
     Dates: start: 20100401, end: 20100502
  7. PARACETAMOL [Concomitant]
  8. CETIRIZINE [Concomitant]
  9. ADCAL-D3 [Concomitant]

REACTIONS (4)
  - VASOCONSTRICTION [None]
  - OEDEMA PERIPHERAL [None]
  - SKIN ULCER [None]
  - SEPSIS [None]
